FAERS Safety Report 15465293 (Version 1)
Quarter: 2018Q4

REPORT INFORMATION
  Report Type: Spontaneous
  Country: GB (occurrence: GB)
  Receive Date: 20181004
  Receipt Date: 20181004
  Transmission Date: 20190204
  Serious: Yes (Hospitalization)
  Sender: FDA-Public Use
  Company Number: GB-TEVA-2018-GB-960719

PATIENT
  Sex: Male

DRUGS (9)
  1. PERINDOPRIL [Suspect]
     Active Substance: PERINDOPRIL
     Dosage: 8 MILLIGRAM DAILY;
     Route: 048
  2. BENDROFLUMETHIAZIDE [Suspect]
     Active Substance: BENDROFLUMETHIAZIDE
     Dosage: 2.5 MILLIGRAM DAILY;
     Route: 048
  3. RANITIDINE. [Suspect]
     Active Substance: RANITIDINE
     Dosage: 300 MILLIGRAM DAILY;
     Route: 048
  4. SERETIDE [Concomitant]
     Active Substance: FLUTICASONE PROPIONATE\SALMETEROL XINAFOATE
  5. CITALOPRAM [Suspect]
     Active Substance: CITALOPRAM HYDROBROMIDE
     Dosage: 40 MILLIGRAM DAILY;
     Route: 048
  6. PARACETAMOL [Concomitant]
     Active Substance: ACETAMINOPHEN
  7. SALBUTAMOL [Concomitant]
     Active Substance: ALBUTEROL
  8. CODEINE [Concomitant]
     Active Substance: CODEINE
  9. FUROSEMIDE. [Suspect]
     Active Substance: FUROSEMIDE
     Dosage: 120 MILLIGRAM DAILY;
     Route: 048

REACTIONS (1)
  - Hyponatraemia [Recovered/Resolved with Sequelae]
